FAERS Safety Report 16908694 (Version 1)
Quarter: 2019Q4

REPORT INFORMATION
  Report Type: Spontaneous
  Country: US (occurrence: US)
  Receive Date: 20191011
  Receipt Date: 20191011
  Transmission Date: 20200122
  Serious: No
  Sender: FDA-Public Use
  Company Number: US-STEMLINE THERAPEUTICS, INC.-2019ST000073

PATIENT
  Sex: Male
  Weight: 122.58 kg

DRUGS (5)
  1. ELZONRIS [Suspect]
     Active Substance: TAGRAXOFUSP-ERZS
     Dosage: CYCLE 4
     Route: 042
  2. ELZONRIS [Suspect]
     Active Substance: TAGRAXOFUSP-ERZS
     Dosage: CYCLE 3
     Route: 042
  3. ELZONRIS [Suspect]
     Active Substance: TAGRAXOFUSP-ERZS
     Indication: BLASTIC PLASMACYTOID DENDRITIC CELL NEOPLASIA
     Dosage: CYCLE 1
     Route: 042
     Dates: start: 20190610
  4. ELZONRIS [Suspect]
     Active Substance: TAGRAXOFUSP-ERZS
     Dosage: CYCLE 2
     Route: 042
  5. ELZONRIS [Suspect]
     Active Substance: TAGRAXOFUSP-ERZS
     Route: 042
     Dates: start: 20190904, end: 20190910

REACTIONS (1)
  - Pain [Not Recovered/Not Resolved]
